FAERS Safety Report 4740450-7 (Version None)
Quarter: 2005Q3

REPORT INFORMATION
  Report Type: 
  Country: None (occurrence: None)
  Receive Date: 20050810
  Receipt Date: 20050726
  Transmission Date: 20060218
  Serious: Yes (Other)
  Sender: FDA-Public Use
  Company Number: 2005AP04254

PATIENT
  Age: 8969 Day
  Sex: Female

DRUGS (3)
  1. LIGNOCAINE [Suspect]
     Route: 008
     Dates: start: 20050106, end: 20050106
  2. LABETALOL HYDROCHLORIDE [Suspect]
     Indication: ESSENTIAL HYPERTENSION
     Route: 048
     Dates: start: 20050106, end: 20050106
  3. SYNTOCINON [Suspect]
     Route: 042
     Dates: start: 20050106, end: 20050106

REACTIONS (4)
  - COMA [None]
  - CONVULSION [None]
  - HYPERTENSION [None]
  - LOSS OF CONSCIOUSNESS [None]
